FAERS Safety Report 17263101 (Version 1)
Quarter: 2019Q4

REPORT INFORMATION
  Report Type: Spontaneous
  Country: US (occurrence: US)
  Receive Date: 20191218
  Receipt Date: 20191218
  Transmission Date: 20200122
  Serious: Yes (Hospitalization)
  Sender: FDA-Public Use
  Company Number: None

PATIENT
  Age: 86 Year
  Sex: Male
  Weight: 78.02 kg

DRUGS (4)
  1. SIMVASTATIN. [Concomitant]
     Active Substance: SIMVASTATIN
  2. METOPROLOL. [Concomitant]
     Active Substance: METOPROLOL
  3. ELIQUIS [Suspect]
     Active Substance: APIXABAN
     Indication: CEREBROVASCULAR ACCIDENT PROPHYLAXIS
     Dosage: ?          QUANTITY:5 MG MILLIGRAM(S);?90 DAY SUPPLY ?
     Route: 048
     Dates: start: 20191012, end: 20191108
  4. IRON [Concomitant]
     Active Substance: IRON

REACTIONS (2)
  - Seizure [None]
  - Haemorrhage [None]

NARRATIVE: CASE EVENT DATE: 20191107
